FAERS Safety Report 8101703-8 (Version None)
Quarter: 2012Q1

REPORT INFORMATION
  Report Type: 
  Country: None (occurrence: None)
  Receive Date: 20120131
  Receipt Date: 20120125
  Transmission Date: 20120608
  Serious: Yes (Death)
  Sender: FDA-Public Use
  Company Number: JP-PFIZER INC-2011308195

PATIENT
  Age: 78 Year
  Sex: Female

DRUGS (3)
  1. AMIKACIN [Concomitant]
     Dosage: 400 MG, 1X/DAY
     Dates: start: 20100101
  2. ZYVOX [Suspect]
     Dosage: 1200 MG, 1X/DAY
     Route: 041
     Dates: start: 20100101
  3. SULFAMETHOXAZOLE AND TRIMETHOPRIM [Suspect]
     Dosage: 12 G, 1X/DAY
     Dates: start: 20100101, end: 20100101

REACTIONS (3)
  - GENERAL PHYSICAL HEALTH DETERIORATION [None]
  - CANDIDA SEPSIS [None]
  - PANCYTOPENIA [None]
